FAERS Safety Report 8555397-8 (Version None)
Quarter: 2012Q3

REPORT INFORMATION
  Report Type: 
  Country: None (occurrence: None)
  Receive Date: 20120731
  Receipt Date: 20110801
  Transmission Date: 20120928
  Serious: Yes (Other)
  Sender: FDA-Public Use
  Company Number: US-ASTRAZENECA-2011SE42823

PATIENT
  Age: 48 Year
  Sex: Female

DRUGS (5)
  1. AMYTRIPTYLINE [Concomitant]
     Route: 048
  2. SEROQUEL [Suspect]
     Indication: SLEEP DISORDER
     Route: 048
     Dates: start: 20110101
  3. SEROQUEL [Suspect]
     Dosage: 100 MG 31 TABLETS AT ONCE AT NIGHT
     Route: 048
  4. LITHIUM CARBONATE [Concomitant]
  5. ZOLPIDEM [Concomitant]
     Indication: SLEEP DISORDER

REACTIONS (2)
  - OFF LABEL USE [None]
  - OVERDOSE [None]
